FAERS Safety Report 5719261-1 (Version None)
Quarter: 2008Q2

REPORT INFORMATION
  Report Type: 
  Country: None (occurrence: None)
  Receive Date: 20080425
  Receipt Date: 20080425
  Transmission Date: 20081010
  Serious: Yes (Other)
  Sender: FDA-Public Use
  Company Number: None

PATIENT
  Age: 84 Year
  Sex: Male
  Weight: 87.9978 kg

DRUGS (12)
  1. CILOSTAZOL [Suspect]
     Indication: SKIN ULCER
     Dosage: 100 MG BID
     Dates: start: 20080208
  2. GABAPENTIN [Concomitant]
  3. AMLODIPINE [Concomitant]
  4. PROSCAR [Concomitant]
  5. LANTUS [Concomitant]
  6. NAFTIN [Concomitant]
  7. DIGOXIN [Concomitant]
  8. SPIRONOLACTONE [Concomitant]
  9. FUROSEMIDE [Concomitant]
  10. DOXAZOSIN MESYLATE [Concomitant]
  11. LISINOPRIL [Concomitant]
  12. ASPIRIN [Concomitant]

REACTIONS (1)
  - MUSCULAR WEAKNESS [None]
